FAERS Safety Report 7378770-2 (Version None)
Quarter: 2011Q1

REPORT INFORMATION
  Report Type: 
  Country: None (occurrence: None)
  Receive Date: 20110328
  Receipt Date: 20110318
  Transmission Date: 20110831
  Serious: Yes (Other)
  Sender: FDA-Public Use
  Company Number: US-BRISTOL-MYERS SQUIBB COMPANY-15626369

PATIENT
  Age: 54 Year
  Sex: Female

DRUGS (3)
  1. ADRIAMYCIN PFS [Suspect]
     Indication: BREAST CANCER
  2. ANASTROZOLE [Suspect]
  3. CYTOXAN [Suspect]
     Indication: BREAST CANCER

REACTIONS (2)
  - OSTEOPENIA [None]
  - HIP FRACTURE [None]
